FAERS Safety Report 9764923 (Version 1)
Quarter: 2013Q4

REPORT INFORMATION
  Report Type: Spontaneous
  Country: US (occurrence: US)
  Receive Date: 20131217
  Receipt Date: 20131217
  Transmission Date: 20140711
  Serious: No
  Sender: FDA-Public Use
  Company Number: US-BIOGENIDEC-2013BI111452

PATIENT
  Sex: Female

DRUGS (11)
  1. TECFIDERA [Suspect]
     Indication: MULTIPLE SCLEROSIS
     Route: 048
     Dates: start: 20130722
  2. AMITRIPTYLINE HCL [Concomitant]
  3. AMLODIPINE BESYLATE [Concomitant]
  4. ATENOLOL [Concomitant]
  5. BACLOFEN [Concomitant]
  6. DARVOCET N 50 [Concomitant]
  7. FEXOFENADINE HCL [Concomitant]
  8. MIRAPEX [Concomitant]
  9. PREMPRO [Concomitant]
  10. ROPINIROLE HCL [Concomitant]
  11. FLUOXETINE HCL [Concomitant]

REACTIONS (1)
  - Alopecia [Unknown]
